FAERS Safety Report 8495081-2 (Version None)
Quarter: 2012Q3

REPORT INFORMATION
  Report Type: 
  Country: None (occurrence: None)
  Receive Date: 20120702
  Receipt Date: 20120702
  Transmission Date: 20120928
  Serious: No
  Sender: FDA-Public Use
  Company Number: None

PATIENT
  Sex: Female
  Weight: 16.8 kg

DRUGS (4)
  1. METHOTREXATE [Suspect]
     Dosage: 1040 MG
  2. ZOSYN [Concomitant]
  3. DEXTROSE 5% NORMAL SALINE [Concomitant]
  4. ZOFRAN [Concomitant]

REACTIONS (8)
  - PUPILLARY REFLEX IMPAIRED [None]
  - VOMITING [None]
  - PAIN [None]
  - RETCHING [None]
  - STOMATITIS [None]
  - CHOKING [None]
  - CARDIO-RESPIRATORY ARREST [None]
  - DIARRHOEA [None]
